FAERS Safety Report 4591740-2 (Version None)
Quarter: 2005Q1

REPORT INFORMATION
  Report Type: 
  Country: None (occurrence: None)
  Receive Date: 20050218
  Receipt Date: 20041103
  Transmission Date: 20050727
  Serious: Yes (Other)
  Sender: FDA-Public Use
  Company Number: 2004BL004272

PATIENT
  Age: 68 Year
  Sex: Female

DRUGS (2)
  1. DESMOPRESSIN ACETATE [Suspect]
     Indication: NEPHROGENIC DIABETES INSIPIDUS
     Dosage: SPRAY; WEEKLY; NASAL; SPRAY; 3 TIMES PER WEEK; NASAL
     Route: 045
     Dates: start: 20031023, end: 20040101
  2. DESMOPRESSIN ACETATE [Suspect]
     Indication: NEPHROGENIC DIABETES INSIPIDUS
     Dosage: SPRAY; WEEKLY; NASAL; SPRAY; 3 TIMES PER WEEK; NASAL
     Route: 045
     Dates: start: 20040101, end: 20040410

REACTIONS (35)
  - ABDOMINAL PAIN UPPER [None]
  - BLOOD CORTISOL DECREASED [None]
  - BLOOD OSMOLARITY INCREASED [None]
  - BLOOD PRESSURE INCREASED [None]
  - BLOOD SODIUM INCREASED [None]
  - BODY TEMPERATURE DECREASED [None]
  - CATARACT [None]
  - CONDITION AGGRAVATED [None]
  - CONFUSIONAL STATE [None]
  - DEPRESSION [None]
  - DIARRHOEA [None]
  - DIZZINESS [None]
  - DRY EYE [None]
  - DYSPHONIA [None]
  - EPISTAXIS [None]
  - EYE OEDEMA [None]
  - GINGIVAL DISORDER [None]
  - HORDEOLUM [None]
  - HYPONATRAEMIA [None]
  - INFLUENZA [None]
  - INFLUENZA LIKE ILLNESS [None]
  - LACRIMAL DISORDER [None]
  - LYMPHADENOPATHY [None]
  - MULTIPLE ALLERGIES [None]
  - MUSCULAR WEAKNESS [None]
  - NASAL CONGESTION [None]
  - OCULAR HYPERAEMIA [None]
  - PERIPHERAL COLDNESS [None]
  - RENAL IMPAIRMENT [None]
  - RHINITIS ATROPHIC [None]
  - SCAB [None]
  - TOOTH INFECTION [None]
  - UPPER RESPIRATORY TRACT INFECTION [None]
  - VITAMIN A DECREASED [None]
  - WATER INTOXICATION [None]
